FAERS Safety Report 10835723 (Version 1)
Quarter: 2015Q1

REPORT INFORMATION
  Report Type: Report from Study
  Country: US (occurrence: None)
  Receive Date: 20150218
  Receipt Date: 20150218
  Transmission Date: 20150721
  Serious: Yes (Hospitalization)
  Sender: FDA-Public Use
  Company Number: US-SAVI-23

PATIENT
  Age: 69 Year
  Sex: Male

DRUGS (7)
  1. TIROFIBAN HYDROCHLORIDE. [Suspect]
     Active Substance: TIROFIBAN HYDROCHLORIDE
     Indication: PROPHYLAXIS
     Route: 042
     Dates: start: 20150107, end: 20150107
  2. SIMVASTATIN. [Concomitant]
     Active Substance: SIMVASTATIN
  3. CLOPIDOGREL [Concomitant]
     Active Substance: CLOPIDOGREL BISULFATE
  4. ASPIRIN. [Concomitant]
     Active Substance: ASPIRIN
  5. ETODOLAC. [Concomitant]
     Active Substance: ETODOLAC
  6. OMEPRAZOLE. [Concomitant]
     Active Substance: OMEPRAZOLE
  7. CHOLECALCIFEROL [Concomitant]
     Active Substance: CHOLECALCIFEROL

REACTIONS (7)
  - Haematemesis [None]
  - Gastrointestinal haemorrhage [None]
  - Melaena [None]
  - Hypoxia [None]
  - Nausea [None]
  - Hypotension [None]
  - Haemoglobin decreased [None]

NARRATIVE: CASE EVENT DATE: 20150107
